FAERS Safety Report 4458089-X (Version None)
Quarter: 2004Q3

REPORT INFORMATION
  Report Type: 
  Country: None (occurrence: None)
  Receive Date: 20040923
  Receipt Date: 20040910
  Transmission Date: 20050211
  Serious: Yes (Other)
  Sender: FDA-Public Use
  Company Number: A-CH2004-07377

PATIENT
  Age: 62 Year
  Sex: Female
  Weight: 77 kg

DRUGS (9)
  1. TRACLEER [Suspect]
     Indication: PULMONARY HYPERTENSION
     Dosage: 62.5 MG, BID, ORAL;125 MG, BID, ORAL
     Route: 048
     Dates: start: 20040618, end: 20040717
  2. TRACLEER [Suspect]
     Indication: PULMONARY HYPERTENSION
     Dosage: 62.5 MG, BID, ORAL;125 MG, BID, ORAL
     Route: 048
     Dates: start: 20040718, end: 20040902
  3. AZATIOPRIN (AZATHIOPRINE) [Concomitant]
  4. WARFARIN SODIUM [Concomitant]
  5. MEDROL [Concomitant]
  6. ADALAT OROS (NIFEDIPINE) [Concomitant]
  7. KALCIPOS (CALCIUM CARBONATE) [Concomitant]
  8. E-VIMIN (TOCOPHERYL ACETATE) [Concomitant]
  9. ZANTAC [Concomitant]

REACTIONS (3)
  - ALANINE AMINOTRANSFERASE INCREASED [None]
  - ASPARTATE AMINOTRANSFERASE INCREASED [None]
  - HEPATIC ENZYME INCREASED [None]
